FAERS Safety Report 7626529-0 (Version None)
Quarter: 2011Q3

REPORT INFORMATION
  Report Type: 
  Country: None (occurrence: None)
  Receive Date: 20110721
  Receipt Date: 20110628
  Transmission Date: 20111222
  Serious: Yes (Death)
  Sender: FDA-Public Use
  Company Number: US-GLAXOSMITHKLINE-A0789936A

PATIENT
  Age: 41 Year
  Sex: Male
  Weight: 92.7 kg

DRUGS (3)
  1. INSULIN [Concomitant]
  2. ACCUPRIL [Concomitant]
  3. AVANDIA [Suspect]
     Indication: DIABETES MELLITUS
     Dosage: 4MG TWICE PER DAY
     Route: 048
     Dates: start: 20000901, end: 20041122

REACTIONS (1)
  - CORONARY ARTERY DISEASE [None]
